FAERS Safety Report 5495618-1 (Version None)
Quarter: 2007Q4

REPORT INFORMATION
  Report Type: 
  Country: None (occurrence: None)
  Receive Date: 20071018
  Receipt Date: 20070329
  Transmission Date: 20080405
  Serious: Yes (Other)
  Sender: FDA-Public Use
  Company Number: 2006051801

PATIENT
  Sex: Male

DRUGS (13)
  1. NEURONTIN [Suspect]
     Indication: PAIN
     Dosage: 300 MG, ORAL
     Route: 048
  2. GABITRIL [Concomitant]
  3. PERCOCET [Concomitant]
  4. PREDNISONE TAB [Concomitant]
  5. TRAMADOL HCL [Concomitant]
  6. ZYRTEC [Concomitant]
  7. BEXTRA [Concomitant]
  8. MONTELUKAST SODIUM [Concomitant]
  9. ALBUTEROL [Concomitant]
  10. SKELAXIN [Concomitant]
  11. XANAX [Concomitant]
  12. VALIUM [Concomitant]
  13. CLONIDINE [Concomitant]

REACTIONS (2)
  - DRUG INEFFECTIVE [None]
  - SUICIDE ATTEMPT [None]
